FAERS Safety Report 16833269 (Version 4)
Quarter: 2021Q2

REPORT INFORMATION
  Report Type: Spontaneous
  Country: US (occurrence: US)
  Receive Date: 20190920
  Receipt Date: 20210407
  Transmission Date: 20210716
  Serious: Yes (Other)
  Sender: FDA-Public Use
  Company Number: US-GILEAD-2019-0428487

PATIENT
  Age: 37 Year
  Sex: Male
  Weight: 108.84 kg

DRUGS (26)
  1. TYLENOL [Concomitant]
     Active Substance: ACETAMINOPHEN
     Dosage: UNK
     Dates: start: 20160809
  2. NORVIR [Concomitant]
     Active Substance: RITONAVIR
     Dosage: UNK
     Dates: start: 20120326, end: 20120411
  3. CLARITINE [Concomitant]
     Active Substance: LORATADINE
     Indication: NASAL CONGESTION
     Dosage: UNK
     Dates: start: 2012, end: 2014
  4. DIPHENHYDRAMINE HCL [Concomitant]
     Active Substance: DIPHENHYDRAMINE HYDROCHLORIDE
     Indication: HYPERSENSITIVITY
     Dosage: UNK
     Dates: start: 2012, end: 2014
  5. CORTISOL ACETATE [Concomitant]
     Active Substance: HYDROCORTISONE ACETATE
     Dosage: UNK
     Dates: start: 20191010, end: 20191010
  6. BACTRIM [Concomitant]
     Active Substance: SULFAMETHOXAZOLE\TRIMETHOPRIM
     Dosage: UNK
     Dates: start: 2017
  7. ISENTRESS [Concomitant]
     Active Substance: RALTEGRAVIR POTASSIUM
     Dosage: UNK
     Dates: start: 20130307, end: 20130521
  8. FLEXERIL [CEFIXIME] [Concomitant]
     Active Substance: CEFIXIME
     Indication: ARTHRITIS
     Dosage: UNK
     Dates: start: 2013, end: 2014
  9. TRAMADOL. [Concomitant]
     Active Substance: TRAMADOL
     Dosage: UNK
     Dates: start: 2016
  10. IBUPROFEN. [Concomitant]
     Active Substance: IBUPROFEN
  11. VITAMIN D [COLECALCIFEROL] [Concomitant]
     Active Substance: CHOLECALCIFEROL
     Dosage: UNK
     Dates: start: 20160119
  12. TYLENOL WITH CODEINE [Concomitant]
     Active Substance: ACETAMINOPHEN\CODEINE PHOSPHATE
  13. ATRIPLA [Suspect]
     Active Substance: EFAVIRENZ\EMTRICITABINE\TENOFOVIR DISOPROXIL FUMARATE
     Indication: ACQUIRED IMMUNODEFICIENCY SYNDROME
  14. TRUVADA [Suspect]
     Active Substance: EMTRICITABINE\TENOFOVIR DISOPROXIL FUMARATE
     Indication: ACQUIRED IMMUNODEFICIENCY SYNDROME
  15. DICLOFENAC [Concomitant]
     Active Substance: DICLOFENAC
     Dosage: UNK
  16. TIVICAY [Concomitant]
     Active Substance: DOLUTEGRAVIR SODIUM
     Dosage: UNK
     Dates: start: 20171025
  17. THERA?M [Concomitant]
     Dosage: UNK
     Dates: start: 20160119
  18. ATRIPLA [Suspect]
     Active Substance: EFAVIRENZ\EMTRICITABINE\TENOFOVIR DISOPROXIL FUMARATE
     Indication: HIV INFECTION
     Dosage: UNK
     Route: 048
     Dates: start: 2011, end: 201707
  19. COMPLERA [Suspect]
     Active Substance: EMTRICITABINE\RILPIVIRINE HYDROCHLORIDE\TENOFOVIR DISOPROXIL FUMARATE
     Indication: HIV INFECTION
     Dosage: UNK
     Route: 048
     Dates: start: 201607, end: 201607
  20. REYATAZ [Concomitant]
     Active Substance: ATAZANAVIR SULFATE
     Dosage: UNK
     Dates: start: 20120326, end: 20120411
  21. CALCIUM CARBONATE. [Concomitant]
     Active Substance: CALCIUM CARBONATE
     Dosage: UNK
     Dates: start: 20160119
  22. TRUVADA [Suspect]
     Active Substance: EMTRICITABINE\TENOFOVIR DISOPROXIL FUMARATE
     Indication: HIV INFECTION
     Dosage: UNK
     Route: 048
     Dates: start: 2012, end: 2013
  23. LANSOPRAZOLE. [Concomitant]
     Active Substance: LANSOPRAZOLE
     Dosage: UNK
     Dates: start: 2012
  24. NAPROXEN. [Concomitant]
     Active Substance: NAPROXEN
     Dosage: UNK
     Dates: start: 20161014
  25. HYDROCODONE [Concomitant]
     Active Substance: HYDROCODONE
     Indication: PAIN
     Dosage: UNK
     Dates: start: 20200125, end: 202002
  26. CYCLOBENZAPRINE. [Concomitant]
     Active Substance: CYCLOBENZAPRINE
     Dosage: UNK
     Dates: start: 201911, end: 201912

REACTIONS (24)
  - Arthralgia [Unknown]
  - Hand fracture [Unknown]
  - Emotional distress [Not Recovered/Not Resolved]
  - Back pain [Unknown]
  - Osteonecrosis [Unknown]
  - Spondylitis [Unknown]
  - Bone loss [Unknown]
  - Degenerative bone disease [Unknown]
  - Trigger finger [Unknown]
  - Economic problem [Not Recovered/Not Resolved]
  - Intervertebral disc degeneration [Unknown]
  - Bone density decreased [Unknown]
  - Fracture [Unknown]
  - Anhedonia [Not Recovered/Not Resolved]
  - Osteoarthritis [Unknown]
  - Anxiety [Not Recovered/Not Resolved]
  - Neck pain [Unknown]
  - Insomnia [Unknown]
  - Depression [Unknown]
  - Pain [Not Recovered/Not Resolved]
  - Cervical radiculopathy [Unknown]
  - Tooth loss [Unknown]
  - Vitamin D deficiency [Unknown]
  - Paranoia [Unknown]

NARRATIVE: CASE EVENT DATE: 2010
